FAERS Safety Report 7286849-9 (Version None)
Quarter: 2011Q1

REPORT INFORMATION
  Report Type: 
  Country: None (occurrence: None)
  Receive Date: 20110211
  Receipt Date: 20110204
  Transmission Date: 20110831
  Serious: Yes (Hospitalization)
  Sender: FDA-Public Use
  Company Number: CA-SP-2010-06443

PATIENT
  Sex: Male

DRUGS (1)
  1. TICE BCG [Suspect]
     Indication: BLADDER TRANSITIONAL CELL CARCINOMA
     Dosage: NOT REPORTED
     Route: 065
     Dates: start: 20050201, end: 20101102

REACTIONS (4)
  - HYPOTENSION [None]
  - PYREXIA [None]
  - SEPSIS [None]
  - TACHYCARDIA [None]
